FAERS Safety Report 13585357 (Version 1)
Quarter: 2017Q2

REPORT INFORMATION
  Report Type: Spontaneous
  Country: GB (occurrence: GB)
  Receive Date: 20170526
  Receipt Date: 20170526
  Transmission Date: 20170830
  Serious: Yes (Other)
  Sender: FDA-Public Use
  Company Number: GB-GLAXOSMITHKLINE-GB2017077285

PATIENT
  Age: 64 Year
  Sex: Female

DRUGS (3)
  1. RANITIDINE. [Suspect]
     Active Substance: RANITIDINE
     Indication: GASTROINTESTINAL DISORDER
     Dosage: 50 MG, UNK
     Route: 042
     Dates: start: 20170508, end: 20170509
  2. CLEXANE [Concomitant]
     Active Substance: ENOXAPARIN SODIUM
     Dosage: UNK
     Route: 058
  3. PARACETAMOL [Concomitant]
     Active Substance: ACETAMINOPHEN
     Dosage: 1000 MG, UNK
     Route: 042

REACTIONS (7)
  - Flushing [Recovered/Resolved]
  - Rash [Recovered/Resolved]
  - Glassy eyes [Recovered/Resolved]
  - Blood pressure decreased [Recovered/Resolved]
  - Headache [Recovered/Resolved]
  - Heart rate increased [Recovered/Resolved]
  - Palpitations [Recovered/Resolved]

NARRATIVE: CASE EVENT DATE: 20170509
